FAERS Safety Report 7425648-1 (Version None)
Quarter: 2011Q2

REPORT INFORMATION
  Report Type: 
  Country: None (occurrence: None)
  Receive Date: 20110412
  Receipt Date: 20110328
  Transmission Date: 20111010
  Serious: Yes (Hospitalization)
  Sender: FDA-Public Use
  Company Number: 1000019879

PATIENT
  Sex: Female

DRUGS (9)
  1. CO-CODAMOL (CODEINE PHOSPHATE, PARACETAMOL), (CODEINE PHOSPHATE, PARAC [Concomitant]
  2. FUROSEMIDE (FUROSEMIDE) [Concomitant]
  3. METFORMIN HCL [Concomitant]
  4. RAMIPRIL [Concomitant]
  5. CITALOPRAM HYDROBROMIDE [Suspect]
     Indication: DEPRESSION
     Dosage: 20 MG (20 MG,1 IN 1 D),ORAL
     Route: 048
     Dates: start: 20110214, end: 20110221
  6. NEFOPAM (NEFOPAM) (NEFOPAM) [Concomitant]
  7. PARAFFIN (PARAFFIN) (15 PERCENT) (PARAFFIN) [Concomitant]
  8. MIRTAZAPINE [Concomitant]
  9. ISOPROPYL MYRISTATE (ISOPROPYL MYIRSTATE) (15 PERCENT) (ISOPROPYL MYRI [Concomitant]

REACTIONS (1)
  - ANGLE CLOSURE GLAUCOMA [None]
